FAERS Safety Report 6348799-1 (Version None)
Quarter: 2009Q3

REPORT INFORMATION
  Report Type: 
  Country: None (occurrence: None)
  Receive Date: 20090911
  Receipt Date: 20090901
  Transmission Date: 20100115
  Serious: Yes (Death, Hospitalization)
  Sender: FDA-Public Use
  Company Number: JP-AMGEN-US353971

PATIENT
  Sex: Female

DRUGS (10)
  1. ENBREL [Suspect]
     Indication: RHEUMATOID ARTHRITIS
     Route: 058
     Dates: start: 20081113, end: 20090611
  2. RHEUMATREX [Suspect]
     Indication: RHEUMATOID ARTHRITIS
     Route: 048
     Dates: start: 20070401, end: 20090401
  3. HYPEN [Concomitant]
     Dosage: UNSPECIFIED
     Route: 048
     Dates: end: 20090625
  4. MUCOSTA [Concomitant]
     Dosage: UNSPECIFIED
     Route: 048
     Dates: end: 20090625
  5. OLMETEC [Concomitant]
     Route: 048
     Dates: start: 20090401, end: 20090625
  6. PROMAC [Concomitant]
     Dosage: UNSPECIFIED
     Route: 048
     Dates: end: 20090625
  7. PREDONINE [Concomitant]
     Route: 048
  8. FOLIAMIN [Concomitant]
     Dosage: UNSPECIFIED
     Route: 048
     Dates: start: 20070701, end: 20090401
  9. NORVASC [Concomitant]
     Route: 048
     Dates: start: 20090201, end: 20090625
  10. AZULFIDINE [Concomitant]
     Route: 048
     Dates: end: 20090625

REACTIONS (5)
  - PANCYTOPENIA [None]
  - PNEUMONIA BACTERIAL [None]
  - RENAL FAILURE ACUTE [None]
  - SEPSIS [None]
  - STOMATITIS [None]
